FAERS Safety Report 4539503-8 (Version None)
Quarter: 2004Q4

REPORT INFORMATION
  Report Type: 
  Country: None (occurrence: None)
  Receive Date: 20041223
  Receipt Date: 20041207
  Transmission Date: 20050328
  Serious: No
  Sender: FDA-Public Use
  Company Number: 9469

PATIENT
  Age: 63 Year
  Sex: Female

DRUGS (2)
  1. PACLITAXEL [Suspect]
     Indication: METASTASES TO LUNG
     Dosage: IV
     Route: 042
  2. CARBOPLATIN [Suspect]
     Indication: METASTASES TO LUNG
     Dosage: IV
     Route: 042

REACTIONS (5)
  - DIARRHOEA [None]
  - MALIGNANT NEOPLASM PROGRESSION [None]
  - METASTASES TO LUNG [None]
  - RECTAL HAEMORRHAGE [None]
  - TELANGIECTASIA [None]
